FAERS Safety Report 4896671-6 (Version None)
Quarter: 2006Q1

REPORT INFORMATION
  Report Type: 
  Country: None (occurrence: None)
  Receive Date: 20060131
  Receipt Date: 20060123
  Transmission Date: 20060701
  Serious: Yes (Hospitalization)
  Sender: FDA-Public Use
  Company Number: FR-ROCHE-433071

PATIENT
  Age: 71 Year
  Sex: Female

DRUGS (6)
  1. LOXEN LP [Suspect]
     Indication: DRUG USE FOR UNKNOWN INDICATION
     Route: 048
     Dates: start: 20051108, end: 20051221
  2. SULFASALAZINE [Suspect]
     Indication: RHEUMATOID ARTHRITIS
     Route: 048
     Dates: start: 20051108, end: 20051221
  3. CORTANCYL [Suspect]
     Indication: RHEUMATOID ARTHRITIS
     Route: 048
     Dates: start: 20051108, end: 20051221
  4. ROSUVASTATIN [Concomitant]
     Route: 048
     Dates: end: 20051221
  5. HYDROCHLOROTHIAZIDE/IRBESARTAN [Concomitant]
     Route: 048
     Dates: end: 20051221
  6. PAROXETINE HYDROCHLORIDE [Concomitant]
     Route: 048
     Dates: end: 20051221

REACTIONS (2)
  - LUNG INFECTION [None]
  - NEUTROPENIA [None]
